FAERS Safety Report 4361453-0 (Version None)
Quarter: 2004Q2

REPORT INFORMATION
  Report Type: 
  Country: None (occurrence: None)
  Receive Date: 20040521
  Receipt Date: 20030616
  Transmission Date: 20050107
  Serious: No
  Sender: FDA-Public Use
  Company Number: US-GLAXOSMITHKLINE-A0412626A

PATIENT
  Age: 28 Year
  Sex: Male

DRUGS (1)
  1. ZYBAN [Suspect]
     Dosage: 150MG TWICE PER DAY
     Route: 048
     Dates: start: 20030521, end: 20030524

REACTIONS (3)
  - HYPERSENSITIVITY [None]
  - RASH [None]
  - URTICARIA [None]
